FAERS Safety Report 10872152 (Version 5)
Quarter: 2016Q1

REPORT INFORMATION
  Report Type: Report from Study
  Country: US (occurrence: US)
  Receive Date: 20150226
  Receipt Date: 20160112
  Transmission Date: 20160525
  Serious: Yes (Hospitalization)
  Sender: FDA-Public Use
  Company Number: US-EISAI MEDICAL RESEARCH-EC-2015-003422

PATIENT
  Age: 57 Year
  Sex: Male
  Weight: 128.8 kg

DRUGS (27)
  1. LORCASERIN [Suspect]
     Active Substance: LORCASERIN HYDROCHLORIDE
     Route: 048
     Dates: start: 20150312, end: 20150708
  2. AMARYL [Concomitant]
     Active Substance: GLIMEPIRIDE
     Route: 048
     Dates: start: 2002
  3. METFORMIN [Concomitant]
     Active Substance: METFORMIN HYDROCHLORIDE
     Route: 048
     Dates: start: 2002
  4. EXENATIDE MICROSPHERES [Concomitant]
     Route: 048
     Dates: start: 2014
  5. OMEPRAZOLE. [Concomitant]
     Active Substance: OMEPRAZOLE
  6. PLAVIX [Concomitant]
     Active Substance: CLOPIDOGREL BISULFATE
     Route: 048
     Dates: start: 2002
  7. LISINOPRIL. [Concomitant]
     Active Substance: LISINOPRIL
     Route: 048
     Dates: start: 1995
  8. ATORVASTATIN [Concomitant]
     Active Substance: ATORVASTATIN
     Route: 048
     Dates: start: 2002
  9. PREDNISONE. [Concomitant]
     Active Substance: PREDNISONE
  10. BYDUREON [Concomitant]
     Active Substance: EXENATIDE
  11. LORCASERIN [Suspect]
     Active Substance: LORCASERIN HYDROCHLORIDE
     Route: 048
     Dates: start: 20150709
  12. VITAMIN B COMPLEX [Concomitant]
     Active Substance: CYANOCOBALAMIN\DEXPANTHENOL\NIACINAMIDE\PYRIDOXINE HYDROCHLORIDE\RIBOFLAVIN 5^-PHOSPHATE SODIUM\THIAMINE HYDROCHLORIDE\VITAMIN B COMPLEX
     Route: 048
     Dates: start: 2002
  13. IMDUR [Concomitant]
     Active Substance: ISOSORBIDE MONONITRATE
     Route: 048
     Dates: start: 1995
  14. MOTRIN [Concomitant]
     Active Substance: IBUPROFEN
     Route: 048
     Dates: start: 2014
  15. DOXYCYCLINE. [Concomitant]
     Active Substance: DOXYCYCLINE
  16. NITROGLYCERIN. [Concomitant]
     Active Substance: NITROGLYCERIN
  17. TYLENOL [Concomitant]
     Active Substance: ACETAMINOPHEN
     Route: 048
     Dates: start: 2014
  18. NYSTATIN SUSPENSION [Concomitant]
     Active Substance: NYSTATIN
  19. FAMOTIDINE. [Concomitant]
     Active Substance: FAMOTIDINE
  20. LORCASERIN [Suspect]
     Active Substance: LORCASERIN HYDROCHLORIDE
     Indication: WEIGHT CONTROL
     Route: 048
     Dates: start: 20141028, end: 20150310
  21. GABAPENTIN. [Concomitant]
     Active Substance: GABAPENTIN
     Route: 048
     Dates: start: 2002
  22. ASPIRIN. [Concomitant]
     Active Substance: ASPIRIN
     Route: 048
     Dates: start: 2002
  23. VOLTAREN [Concomitant]
     Active Substance: DICLOFENAC SODIUM
     Route: 061
     Dates: start: 2014
  24. LOPRESSOR [Concomitant]
     Active Substance: METOPROLOL TARTRATE
     Route: 048
     Dates: start: 2002
  25. PROZAC [Concomitant]
     Active Substance: FLUOXETINE HYDROCHLORIDE
     Route: 048
     Dates: start: 2013
  26. FISH OIL [Concomitant]
     Active Substance: FISH OIL
     Route: 048
     Dates: start: 2002
  27. AMARYL [Concomitant]
     Active Substance: GLIMEPIRIDE

REACTIONS (2)
  - Upper respiratory tract infection [Recovered/Resolved]
  - Non-cardiac chest pain [Recovered/Resolved]

NARRATIVE: CASE EVENT DATE: 20150103
